FAERS Safety Report 20469732 (Version 1)
Quarter: 2022Q1

REPORT INFORMATION
  Report Type: Spontaneous
  Country: US (occurrence: US)
  Receive Date: 20220214
  Receipt Date: 20220214
  Transmission Date: 20220423
  Serious: No
  Sender: FDA-Public Use
  Company Number: US-PFIZER INC-202200238477

PATIENT
  Age: 86 Year
  Sex: Female
  Weight: 53.515 kg

DRUGS (1)
  1. PREGABALIN [Suspect]
     Active Substance: PREGABALIN
     Indication: Arthralgia
     Dosage: 50 MG, 3X/DAY
     Route: 048

REACTIONS (2)
  - Drug intolerance [Unknown]
  - Off label use [Unknown]
